FAERS Safety Report 15878857 (Version 7)
Quarter: 2019Q4

REPORT INFORMATION
  Report Type: Report from Study
  Country: CA (occurrence: CA)
  Receive Date: 20190128
  Receipt Date: 20191008
  Transmission Date: 20200122
  Serious: Yes (Other)
  Sender: FDA-Public Use
  Company Number: CA-SA-2018SA254343

PATIENT
  Age: 42 Year
  Sex: Female

DRUGS (7)
  1. ACYCLOVIR [ACICLOVIR] [Concomitant]
     Active Substance: ACYCLOVIR
     Indication: PREMEDICATION
     Dosage: 200 MG, UNK
     Route: 048
     Dates: start: 20180904, end: 20180906
  2. METHYLPREDNISOLONE [METHYLPREDNISOLONE ACETATE] [Concomitant]
     Indication: PREMEDICATION
     Dosage: 1 G, UNK
     Route: 042
     Dates: start: 20180904, end: 20180906
  3. ACETAMINOPHEN. [Concomitant]
     Active Substance: ACETAMINOPHEN
     Indication: PREMEDICATION
     Dosage: 1 G, UNK
     Route: 048
     Dates: start: 20180904, end: 20180906
  4. ZANTAC [Concomitant]
     Active Substance: RANITIDINE HYDROCHLORIDE
     Indication: PREMEDICATION
     Dosage: 150 MG, UNK
     Route: 048
     Dates: start: 20180904, end: 20180906
  5. BACTRIM [Concomitant]
     Active Substance: SULFAMETHOXAZOLE\TRIMETHOPRIM
     Indication: PREMEDICATION
     Dosage: 5 MG, UNK
     Route: 048
     Dates: start: 20180904, end: 20180906
  6. ALEMTUZUMAB [Suspect]
     Active Substance: ALEMTUZUMAB
     Indication: RELAPSING-REMITTING MULTIPLE SCLEROSIS
     Dosage: 12 MG, QD
     Route: 041
     Dates: start: 20180904, end: 20180906
  7. REACTINE [CETIRIZINE HYDROCHLORIDE] [Concomitant]
     Active Substance: CETIRIZINE HYDROCHLORIDE
     Indication: PREMEDICATION
     Dosage: 10 MG, UNK
     Route: 048
     Dates: start: 20180904, end: 20180906

REACTIONS (18)
  - Red blood cells urine positive [Not Recovered/Not Resolved]
  - Culture urine positive [Recovered/Resolved]
  - Enterococcus test positive [Recovered/Resolved]
  - Monocyte percentage increased [Recovered/Resolved]
  - Urine ketone body present [Recovered/Resolved]
  - Urobilinogen urine increased [Recovered/Resolved]
  - Hypoaesthesia [Recovered/Resolved]
  - Neutrophil percentage increased [Recovered/Resolved]
  - Lymphocyte percentage decreased [Not Recovered/Not Resolved]
  - Blood urine present [Not Recovered/Not Resolved]
  - Lymphocyte count decreased [Recovered/Resolved]
  - Headache [Recovered/Resolved]
  - Insomnia [Recovering/Resolving]
  - Nausea [Recovered/Resolved]
  - White blood cells urine [Not Recovered/Not Resolved]
  - Bacterial test positive [Recovered/Resolved]
  - Staphylococcal infection [Recovered/Resolved]
  - Specific gravity urine decreased [Recovered/Resolved]

NARRATIVE: CASE EVENT DATE: 20180904
